FAERS Safety Report 6788102-6 (Version None)
Quarter: 2010Q2

REPORT INFORMATION
  Report Type: 
  Country: None (occurrence: None)
  Receive Date: 20100623
  Receipt Date: 20080212
  Transmission Date: 20101027
  Serious: Yes (Hospitalization, Other)
  Sender: FDA-Public Use
  Company Number: US-PFIZER INC-2007104223

PATIENT
  Sex: Male
  Weight: 101.6 kg

DRUGS (6)
  1. GEODON [Suspect]
     Indication: SCHIZOAFFECTIVE DISORDER
     Dosage: 40MG IN AM AND 160MG AT NIGHT
     Dates: start: 20070620
  2. GEODON [Suspect]
     Indication: MANIA
  3. MULTI-VITAMINS [Concomitant]
  4. BENADRYL [Concomitant]
  5. OLANZAPINE [Concomitant]
     Dates: start: 20070501
  6. DOCUSATE [Concomitant]

REACTIONS (3)
  - HYPOMANIA [None]
  - MANIA [None]
  - SEDATION [None]
